FAERS Safety Report 8750289 (Version 3)
Quarter: 2014Q2

REPORT INFORMATION
  Report Type: Spontaneous
  Country: US (occurrence: None)
  Receive Date: 20120809
  Receipt Date: 20140414
  Transmission Date: 20141212
  Serious: Yes (Hospitalization)
  Sender: FDA-Public Use
  Company Number: AUR-APL-2012-03398

PATIENT
  Age: 70 Year
  Sex: Male

DRUGS (2)
  1. DONEPEZIL [Suspect]
     Indication: PRODUCT USED FOR UNKNOWN INDICATION
  2. QUETIAPINE FUMARATE [Concomitant]

REACTIONS (7)
  - Euphoric mood [None]
  - Mania [None]
  - Speech disorder [None]
  - Psychomotor hyperactivity [None]
  - Sleep disorder [None]
  - Psychomotor hyperactivity [None]
  - Off label use [None]
